FAERS Safety Report 4343661-8 (Version None)
Quarter: 2004Q2

REPORT INFORMATION
  Report Type: 
  Country: None (occurrence: None)
  Receive Date: 20040419
  Receipt Date: 20040408
  Transmission Date: 20050107
  Serious: Yes (Death)
  Sender: FDA-Public Use
  Company Number: 2004AP01728

PATIENT
  Sex: Female

DRUGS (5)
  1. ARIMIDEX [Suspect]
     Indication: BREAST CANCER RECURRENT
     Dosage: 1 MG DAILY PO
     Route: 048
     Dates: start: 20030715, end: 20040113
  2. AROMASIN [Concomitant]
  3. EPIRUBICIN [Concomitant]
  4. ENDOXAN [Concomitant]
  5. FURTULON [Concomitant]

REACTIONS (5)
  - BREAST CANCER RECURRENT [None]
  - COMPLETED SUICIDE [None]
  - DEPRESSION [None]
  - MALIGNANT NEOPLASM PROGRESSION [None]
  - TREATMENT NONCOMPLIANCE [None]
